FAERS Safety Report 4916748-6 (Version None)
Quarter: 2006Q1

REPORT INFORMATION
  Report Type: 
  Country: None (occurrence: None)
  Receive Date: 20060214
  Receipt Date: 20060201
  Transmission Date: 20060701
  Serious: Yes (Hospitalization, Other)
  Sender: FDA-Public Use
  Company Number: 2006018560

PATIENT
  Age: 60 Year
  Sex: Male

DRUGS (2)
  1. SOLU-MEDROL [Suspect]
     Indication: RASH
     Dosage: INTRAVENOUS
     Route: 042
     Dates: start: 20040210, end: 20040101
  2. PREDNISOLONE [Concomitant]

REACTIONS (1)
  - MYOCARDIAL INFARCTION [None]
